FAERS Safety Report 4805243-0 (Version None)
Quarter: 2005Q4

REPORT INFORMATION
  Report Type: 
  Country: None (occurrence: None)
  Receive Date: 20051017
  Receipt Date: 20051011
  Transmission Date: 20060501
  Serious: Yes (Death)
  Sender: FDA-Public Use
  Company Number: 2005PV002910

PATIENT
  Age: 63 Year
  Sex: Male

DRUGS (8)
  1. BYETTA [Suspect]
     Indication: DIABETES MELLITUS NON-INSULIN-DEPENDENT
     Dosage: 5 MCG; BID; SC
     Route: 058
     Dates: start: 20050825, end: 20050101
  2. LIPITOR [Concomitant]
  3. TRICOR [Concomitant]
  4. VERAPAMIL [Concomitant]
  5. LISINOPRIL [Concomitant]
  6. ASPIRIN [Concomitant]
  7. THIAZIDE [Concomitant]
  8. INSULIN [Concomitant]

REACTIONS (3)
  - HAEMORRHOID OPERATION [None]
  - LUNG DISORDER [None]
  - PULSE ABSENT [None]
